FAERS Safety Report 10098627 (Version 3)
Quarter: 2014Q2

REPORT INFORMATION
  Report Type: Spontaneous
  Country: JP (occurrence: None)
  Receive Date: 20140421
  Receipt Date: 20140624
  Transmission Date: 20141212
  Serious: Yes (Hospitalization)
  Sender: FDA-Public Use
  Company Number: B140403007

PATIENT
  Age: 4 Year
  Sex: Female

DRUGS (11)
  1. BUPHENYL [Suspect]
     Indication: AMINO ACID METABOLISM DISORDER
     Route: 048
     Dates: start: 20130524, end: 20130604
  2. SODIUM BENZOATE [Suspect]
     Indication: AMINO ACID METABOLISM DISORDER
     Dates: start: 20140405
  3. PHENOBAL [Suspect]
     Indication: CONCOMITANT DISEASE AGGRAVATED
     Route: 048
     Dates: start: 20130605
  4. E KEPPRA [Suspect]
     Indication: CONCOMITANT DISEASE AGGRAVATED
     Dates: start: 20131003
  5. CITRULINE [Concomitant]
  6. CARNITINE [Concomitant]
  7. KANAMYCIN [Concomitant]
  8. LACTULOSE [Concomitant]
  9. AMIYU [Concomitant]
  10. LIORESAL (BACLOFEN) [Concomitant]
  11. ROZEREM [Concomitant]

REACTIONS (2)
  - Renal tubular disorder [None]
  - Metabolic acidosis [None]
